FAERS Safety Report 13096889 (Version 1)
Quarter: 2017Q1

REPORT INFORMATION
  Report Type: Spontaneous
  Country: US (occurrence: US)
  Receive Date: 20170109
  Receipt Date: 20170109
  Transmission Date: 20170428
  Serious: No
  Sender: FDA-Public Use
  Company Number: US-PFIZER INC-2016429514

PATIENT
  Age: 65 Year
  Sex: Female

DRUGS (1)
  1. LYRICA [Suspect]
     Active Substance: PREGABALIN
     Indication: SARCOIDOSIS
     Dosage: 200 MG, TWICE A DAY
     Route: 048

REACTIONS (2)
  - Drug hypersensitivity [Unknown]
  - Product use issue [Unknown]
